FAERS Safety Report 8416193 (Version 2)
Quarter: 2013Q1

REPORT INFORMATION
  Report Type: Spontaneous
  Country: US (occurrence: US)
  Receive Date: 20120218
  Receipt Date: 20130119
  Transmission Date: 20140127
  Serious: Yes (Hospitalization)
  Sender: FDA-Public Use
  Company Number: US-ALLERGAN-1115995US

PATIENT
  Age: 72 Year
  Sex: Female

DRUGS (5)
  1. BOTOX? [Suspect]
     Indication: TORTICOLLIS
     Dosage: 130 UNITS, SINGLE
     Route: 030
     Dates: start: 20111104, end: 20111104
  2. BOTOX? [Suspect]
     Dosage: UNK
     Dates: start: 20110415, end: 20110415
  3. BOTOX? [Suspect]
     Dosage: UNK
     Dates: start: 20080201, end: 20080201
  4. BOTOX? [Suspect]
     Dosage: UNK
     Dates: start: 20070209, end: 20070209
  5. PROTONIX [Concomitant]
     Indication: GASTROOESOPHAGEAL REFLUX DISEASE
     Dosage: 40 MG, QD
     Route: 048

REACTIONS (1)
  - Dysphagia [Not Recovered/Not Resolved]
